FAERS Safety Report 15789972 (Version 1)
Quarter: 2019Q1

REPORT INFORMATION
  Report Type: Spontaneous
  Country: US (occurrence: US)
  Receive Date: 20190103
  Receipt Date: 20190103
  Transmission Date: 20190417
  Serious: Yes (Death, Other)
  Sender: FDA-Public Use
  Company Number: None

PATIENT
  Age: 53 Year
  Sex: Female

DRUGS (1)
  1. DOXORUBICIN-LIPOS [Suspect]
     Active Substance: DOXORUBICIN

REACTIONS (1)
  - Death [None]

NARRATIVE: CASE EVENT DATE: 20190101
